FAERS Safety Report 20181611 (Version 2)
Quarter: 2022Q1

REPORT INFORMATION
  Report Type: Spontaneous
  Country: CA (occurrence: CA)
  Receive Date: 20211214
  Receipt Date: 20220111
  Transmission Date: 20220424
  Serious: Yes (Other)
  Sender: FDA-Public Use
  Company Number: CA-AMERICAN REGENT INC-2021003220

PATIENT
  Age: 27 Year
  Sex: Female

DRUGS (2)
  1. VENOFER [Suspect]
     Active Substance: IRON SUCROSE
     Indication: Hereditary disorder
     Dosage: 100 MILLIGRAM, SINGLE
     Dates: start: 20210810, end: 20210810
  2. VENOFER [Suspect]
     Active Substance: IRON SUCROSE
     Indication: Iron deficiency

REACTIONS (7)
  - Speech disorder [Recovered/Resolved]
  - Burning sensation [Recovered/Resolved]
  - Throat tightness [Recovered/Resolved]
  - Urticaria [Recovered/Resolved]
  - Abdominal pain [Recovered/Resolved]
  - Back pain [Recovered/Resolved]
  - Product use in unapproved indication [Unknown]

NARRATIVE: CASE EVENT DATE: 20210810
